FAERS Safety Report 4696802-7 (Version None)
Quarter: 2005Q2

REPORT INFORMATION
  Report Type: 
  Country: None (occurrence: None)
  Receive Date: 20050622
  Receipt Date: 20050615
  Transmission Date: 20051028
  Serious: Yes (Hospitalization)
  Sender: FDA-Public Use
  Company Number: US-BRISTOL-MYERS SQUIBB COMPANY-13003868

PATIENT
  Age: 58 Year
  Sex: Male

DRUGS (8)
  1. CISPLATIN [Suspect]
     Indication: SQUAMOUS CELL CARCINOMA
     Route: 042
     Dates: start: 20010531, end: 20010705
  2. CETUXIMAB [Suspect]
     Indication: SQUAMOUS CELL CARCINOMA
     Route: 042
     Dates: start: 20010531, end: 20010614
  3. SYNTHROID [Concomitant]
  4. AMBIEN [Concomitant]
  5. PROTONIX [Concomitant]
  6. XANAX [Concomitant]
  7. ROXICET [Concomitant]
  8. DURAGESIC-100 [Concomitant]

REACTIONS (1)
  - SEPSIS [None]
